FAERS Safety Report 5504517-8 (Version None)
Quarter: 2007Q4

REPORT INFORMATION
  Report Type: 
  Country: None (occurrence: None)
  Receive Date: 20071030
  Receipt Date: 20071018
  Transmission Date: 20080405
  Serious: No
  Sender: FDA-Public Use
  Company Number: B0491158A

PATIENT
  Age: 43 Year
  Sex: Female

DRUGS (4)
  1. RETROVIR [Suspect]
     Indication: HIV INFECTION
     Dosage: ORAL
     Route: 048
     Dates: start: 20040708
  2. INDINIVIR SULFATE [Suspect]
     Indication: HIV INFECTION
     Dates: start: 20040708
  3. GANCICLOVIR [Concomitant]
  4. GANCICLOVIR [Concomitant]

REACTIONS (6)
  - CYTOMEGALOVIRUS CHORIORETINITIS [None]
  - CYTOMEGALOVIRUS VIRAEMIA [None]
  - IMMUNE RECONSTITUTION SYNDROME [None]
  - MACULAR OEDEMA [None]
  - RETINAL DETACHMENT [None]
  - UVEITIS [None]
